FAERS Safety Report 20121447 (Version 1)
Quarter: 2021Q4

REPORT INFORMATION
  Report Type: Spontaneous
  Country: US (occurrence: None)
  Receive Date: 20211126
  Receipt Date: 20211126
  Transmission Date: 20220303
  Serious: Yes (Hospitalization)
  Sender: FDA-Public Use
  Company Number: None

PATIENT
  Age: 57 Year
  Sex: Male

DRUGS (1)
  1. EPCLUSA [Suspect]
     Active Substance: SOFOSBUVIR\VELPATASVIR
     Indication: Chronic hepatitis C
     Dosage: OTHER QUANTITY : 400-100 MG ;?FREQUENCY : DAILY;?
     Route: 048
     Dates: start: 202108

REACTIONS (4)
  - Pneumonia [None]
  - Sepsis [None]
  - Renal failure [None]
  - Dialysis [None]

NARRATIVE: CASE EVENT DATE: 20211107
